FAERS Safety Report 8610494-3 (Version None)
Quarter: 2012Q3

REPORT INFORMATION
  Report Type: 
  Country: None (occurrence: None)
  Receive Date: 20120822
  Receipt Date: 20120816
  Transmission Date: 20120928
  Serious: No
  Sender: FDA-Public Use
  Company Number: US-PFIZER INC-2012201265

PATIENT
  Age: 51 Year
  Sex: Female
  Weight: 72.562 kg

DRUGS (2)
  1. LORAZEPAM [Concomitant]
     Indication: ANXIETY
     Dosage: UNK
     Dates: start: 20070101
  2. PRISTIQ [Suspect]
     Indication: DEPRESSION
     Dosage: 50 MG, DAILY
     Route: 048
     Dates: start: 20120501

REACTIONS (4)
  - MEDICATION RESIDUE [None]
  - DECREASED APPETITE [None]
  - WEIGHT DECREASED [None]
  - CONDITION AGGRAVATED [None]
